FAERS Safety Report 4864366-0 (Version None)
Quarter: 2005Q4

REPORT INFORMATION
  Report Type: 
  Country: None (occurrence: None)
  Receive Date: 20051222
  Receipt Date: 20051214
  Transmission Date: 20060501
  Serious: Yes (Hospitalization, Disabling)
  Sender: FDA-Public Use
  Company Number: NO-MERCK-0512NOR00015

PATIENT
  Age: 55 Year
  Sex: Male
  Weight: 103 kg

DRUGS (6)
  1. VIOXX [Suspect]
     Indication: RHEUMATOID ARTHRITIS
     Route: 048
     Dates: start: 20011115, end: 20041013
  2. HYZAAR [Concomitant]
     Indication: HYPERTENSION
     Route: 048
  3. SULFASALAZINE [Concomitant]
     Indication: RHEUMATOID ARTHRITIS
     Route: 065
  4. PREDNISOLONE [Concomitant]
     Indication: RHEUMATOID ARTHRITIS
     Route: 065
  5. ATENOLOL [Concomitant]
     Indication: HYPERTENSION
     Route: 048
  6. ASPIRIN AND MAGNESIUM OXIDE [Concomitant]
     Route: 065

REACTIONS (4)
  - ANGINA PECTORIS [None]
  - CORONARY ARTERY DISEASE [None]
  - FOOT FRACTURE [None]
  - MYOCARDIAL INFARCTION [None]
